FAERS Safety Report 8901775 (Version 1)
Quarter: 2012Q4

REPORT INFORMATION
  Report Type: Spontaneous
  Country: US (occurrence: None)
  Receive Date: 20121112
  Receipt Date: 20121112
  Transmission Date: 20130627
  Serious: Yes (Disabling)
  Sender: FDA-Public Use
  Company Number: None

PATIENT
  Sex: Female
  Weight: 85.28 kg

DRUGS (2)
  1. METHYLPREDNISOLONE [Suspect]
     Route: 014
  2. BETAMETHASONE [Suspect]

REACTIONS (1)
  - No therapeutic response [None]
